FAERS Safety Report 9515227 (Version 1)
Quarter: 2013Q1

REPORT INFORMATION
  Report Type: Spontaneous
  Country: US (occurrence: None)
  Receive Date: 20130305
  Receipt Date: 20130305
  Transmission Date: 20140127
  Serious: Yes (Disabling, Other)
  Sender: FDA-Public Use
  Company Number: 163-21880-12102964

PATIENT
  Sex: Male
  Weight: 77.11 kg

DRUGS (14)
  1. REVLIMID (LENALIDOMIDE) (CAPSULES) [Suspect]
     Indication: MYELODYSPLASTIC SYNDROME
     Dosage: 21 IN 21 D
     Route: 048
     Dates: start: 201201
  2. ARANESP (DARBEPOETIN ALFA) [Concomitant]
  3. CO Q 10(UBIDECARENONE) [Concomitant]
  4. FISH OIL (FISH OIL) [Concomitant]
  5. FLOMAX [Concomitant]
  6. LEVOTHYROXIN (LEVOTHYROXINE SODIUM) [Concomitant]
  7. LIPITOR (ATORVASTATIN) [Concomitant]
  8. OCUTABS [Concomitant]
  9. RISPERIDONE (RISPERIDONE) [Concomitant]
  10. PLAVIX (CLOPIDOGREL SULFATE) [Concomitant]
  11. HCTZ/TRIAMTERENE (DYAZIDE) [Concomitant]
  12. VITAMIN B12 (CYANOCOBALAMIN) [Concomitant]
  13. VITAMIN B6 (PYRIDOXINE HYDROCHLORIDE) [Concomitant]
  14. VITAMIN D3 (COLECALCIFEROL) [Concomitant]

REACTIONS (1)
  - Haematochezia [None]
